FAERS Safety Report 8300669-5 (Version None)
Quarter: 2012Q2

REPORT INFORMATION
  Report Type: 
  Country: None (occurrence: None)
  Receive Date: 20120420
  Receipt Date: 20120411
  Transmission Date: 20120825
  Serious: Yes (Other)
  Sender: FDA-Public Use
  Company Number: PHHY2009BR29685

PATIENT
  Sex: Female

DRUGS (4)
  1. EXELON [Suspect]
     Dosage: 9.5 MG/24H
     Route: 062
  2. DIOSMIN [Concomitant]
     Indication: PERIPHERAL VASCULAR DISORDER
     Dosage: 1 DF, 450/50 MG
     Route: 048
  3. EXELON [Suspect]
     Indication: DEMENTIA ALZHEIMER'S TYPE
     Dosage: 4.6 MG/24H
     Route: 062
  4. LORAZEPAM [Concomitant]
     Indication: SLEEP DISORDER
     Dosage: 2 MG, ONE TABLET
     Route: 048

REACTIONS (5)
  - NERVOUS SYSTEM DISORDER [None]
  - DRUG INEFFECTIVE [None]
  - BREAST CANCER [None]
  - COGNITIVE DISORDER [None]
  - DAYDREAMING [None]
